FAERS Safety Report 17622752 (Version 5)
Quarter: 2020Q4

REPORT INFORMATION
  Report Type: Report from Study
  Country: US (occurrence: US)
  Receive Date: 20200403
  Receipt Date: 20201202
  Transmission Date: 20210113
  Serious: Yes (Hospitalization, Other)
  Sender: FDA-Public Use
  Company Number: US-BIOVITRUM-2020US0918

PATIENT
  Age: 50 Year
  Sex: Female

DRUGS (3)
  1. KINERET [Suspect]
     Active Substance: ANAKINRA
     Indication: RHEUMATOID ARTHRITIS
     Dosage: 100MG/0.67ML
     Route: 058
     Dates: start: 20190416
  2. LEFLUNOMIDE. [Suspect]
     Active Substance: LEFLUNOMIDE
     Indication: PRODUCT USED FOR UNKNOWN INDICATION
  3. KINERET [Suspect]
     Active Substance: ANAKINRA
     Indication: STILL^S DISEASE

REACTIONS (24)
  - Pneumonia [Unknown]
  - Influenza [Unknown]
  - Pain [Unknown]
  - Palpitations [Unknown]
  - Confusional state [Unknown]
  - Peripheral swelling [Unknown]
  - Asthenia [Unknown]
  - Intestinal obstruction [Unknown]
  - Brain injury [Unknown]
  - Memory impairment [Unknown]
  - Rheumatoid arthritis [Unknown]
  - Hallucination [Recovered/Resolved]
  - Off label use [Unknown]
  - Fatigue [Unknown]
  - Condition aggravated [Unknown]
  - Musculoskeletal disorder [Unknown]
  - Arthralgia [Unknown]
  - Dyskinesia [Unknown]
  - Tenderness [Unknown]
  - Bursitis [Unknown]
  - Drug ineffective [Unknown]
  - Pyrexia [Unknown]
  - Onychomycosis [Unknown]
  - Hypersensitivity [Unknown]

NARRATIVE: CASE EVENT DATE: 202008
